FAERS Safety Report 4559939-9 (Version None)
Quarter: 2005Q1

REPORT INFORMATION
  Report Type: 
  Country: None (occurrence: None)
  Receive Date: 20050124
  Receipt Date: 20050107
  Transmission Date: 20050727
  Serious: No
  Sender: FDA-Public Use
  Company Number: 2005-DE-00085LC

PATIENT
  Age: 42 Year
  Sex: Male
  Weight: 70 kg

DRUGS (8)
  1. TNK-TPA (REFERENCE) [Suspect]
     Indication: ACUTE MYOCARDIAL INFARCTION
  2. HEPARIN [Suspect]
     Indication: ACUTE MYOCARDIAL INFARCTION
     Dosage: 5000 U (25000 U, BOLUS), IV
     Route: 042
     Dates: start: 20050102, end: 20050102
  3. TNK-TPA (TRIAL PROCEDURE) [Suspect]
     Indication: ACUTE MYOCARDIAL INFARCTION
     Dosage: TRIAL PROCEDURE
     Dates: start: 20050102, end: 20050102
  4. MORPHINE SULFATE [Suspect]
     Indication: CHEST PAIN
     Dosage: 6 MG (BOLUS), IV
     Route: 042
     Dates: start: 20050102, end: 20050102
  5. DILAUDID [Suspect]
     Indication: CHEST PAIN
     Dosage: 1 MG (BOLUS), IV
     Route: 042
     Dates: start: 20050102, end: 20050102
  6. ATIVAN [Suspect]
     Indication: AGITATION
     Dosage: 3 MG (ONCE), IV
     Route: 042
     Dates: start: 20050102, end: 20050102
  7. VERSED [Suspect]
     Indication: AGITATION
     Dosage: 4 MG (ONCE), IV
     Route: 042
     Dates: start: 20050102, end: 20050102
  8. VERSED [Suspect]
     Indication: SEDATION
     Dosage: 4 MG (ONCE), IV
     Route: 042
     Dates: start: 20050102, end: 20050102

REACTIONS (5)
  - AGITATION [None]
  - CHEST PAIN [None]
  - DELIRIUM [None]
  - DRUG INEFFECTIVE [None]
  - PARALYSIS [None]
